FAERS Safety Report 8883451 (Version 2)
Quarter: 2012Q4

REPORT INFORMATION
  Report Type: Report from Study
  Country: DK (occurrence: DK)
  Receive Date: 20121102
  Receipt Date: 20121120
  Transmission Date: 20130627
  Serious: Yes (Hospitalization)
  Sender: FDA-Public Use
  Company Number: DK-AMGEN-DNKCT2012069736

PATIENT
  Age: 73 Year
  Sex: Female

DRUGS (9)
  1. DENOSUMAB [Suspect]
     Indication: OSTEOPOROSIS POSTMENOPAUSAL
     Dosage: UNK UNK, q6mo
     Route: 058
     Dates: start: 20080130
  2. CALCICHEW D3 [Concomitant]
     Indication: OSTEOPOROSIS
     Dosage: UNK
     Dates: start: 20050201
  3. VITAMIN D [Concomitant]
     Indication: SUPPLEMENTATION THERAPY
     Dosage: 1000 IU, qd
     Dates: start: 20080130
  4. DICLOFENAC [Concomitant]
     Indication: OSTEOARTHRITIS
     Dosage: 50 mg, bid
     Dates: start: 200409
  5. PARACETAMOL [Concomitant]
     Indication: OSTEOARTHRITIS
     Dosage: 500 mg, bid
     Dates: start: 200409
  6. SPARKAL [Concomitant]
     Indication: HYPERTENSION
     Dosage: 5 mg, qd
     Route: 048
     Dates: start: 20120216
  7. FERRO DURETTER [Concomitant]
     Indication: HAEMOGLOBIN DECREASED
     Dosage: 100 mg, qd
     Route: 048
     Dates: start: 20120216
  8. THYCAPZOL [Concomitant]
     Indication: THYREOSTATIC THERAPY
     Dosage: 5 mg, qd
     Route: 048
     Dates: start: 20111223
  9. LOSARSTAD [Concomitant]
     Indication: HYPERTENSION
     Dosage: 50 mg, qd
     Route: 048
     Dates: start: 20101201

REACTIONS (1)
  - Heart valve incompetence [Recovered/Resolved]
